FAERS Safety Report 5648834-X (Version None)
Quarter: 2008Q1

REPORT INFORMATION
  Report Type: 
  Country: None (occurrence: None)
  Receive Date: 20080229
  Receipt Date: 20080213
  Transmission Date: 20080703
  Serious: Yes (Other)
  Sender: FDA-Public Use
  Company Number: PAR_02109_2008

PATIENT
  Age: 19 Year
  Sex: Female

DRUGS (1)
  1. DOXYCYCLINE [Suspect]
     Indication: MALARIA PROPHYLAXIS
     Dosage: (100 MG QD ORAL)
     Route: 048

REACTIONS (5)
  - BENIGN INTRACRANIAL HYPERTENSION [None]
  - COLOUR BLINDNESS [None]
  - IMPAIRED DRIVING ABILITY [None]
  - OPTIC ATROPHY [None]
  - RETINAL EXUDATES [None]
